FAERS Safety Report 16821349 (Version 1)
Quarter: 2019Q3

REPORT INFORMATION
  Report Type: Report from Study
  Country: JP (occurrence: JP)
  Receive Date: 20190918
  Receipt Date: 20190918
  Transmission Date: 20191005
  Serious: Yes (Other)
  Sender: FDA-Public Use
  Company Number: JP-TEVA-2019-JP-1092700

PATIENT
  Age: 34 Year
  Sex: Female
  Weight: 48 kg

DRUGS (9)
  1. LOXOPROFEN [Concomitant]
     Active Substance: LOXOPROFEN
  2. GABALON [Concomitant]
     Active Substance: BACLOFEN
     Dates: start: 20190108
  3. GLATIRAMER ACETATE. [Suspect]
     Active Substance: GLATIRAMER ACETATE
     Indication: RELAPSING-REMITTING MULTIPLE SCLEROSIS
     Route: 058
     Dates: start: 20181226, end: 20190901
  4. ROZEREM [Concomitant]
     Active Substance: RAMELTEON
     Dates: start: 20190107, end: 20190206
  5. MYONAL [Concomitant]
     Dates: start: 20190115, end: 20190128
  6. ANGE28 [Concomitant]
  7. ZOLPIDEM TARTRATE. [Concomitant]
     Active Substance: ZOLPIDEM TARTRATE
     Dates: start: 20181221, end: 20181230
  8. MAGNESIUM OXIDE. [Concomitant]
     Active Substance: MAGNESIUM OXIDE
     Dates: start: 20181221
  9. LYRICA [Concomitant]
     Active Substance: PREGABALIN
     Dates: start: 20181224

REACTIONS (7)
  - Injection site erythema [Recovering/Resolving]
  - Injection site pruritus [Recovering/Resolving]
  - Condition aggravated [Unknown]
  - Injection site swelling [Recovering/Resolving]
  - Central nervous system lesion [Not Recovered/Not Resolved]
  - Therapeutic product effect incomplete [Unknown]
  - Injection site pain [Recovering/Resolving]

NARRATIVE: CASE EVENT DATE: 20181226
